FAERS Safety Report 20462887 (Version 1)
Quarter: 2022Q1

REPORT INFORMATION
  Report Type: Report from Study
  Country: CA (occurrence: CA)
  Receive Date: 20220211
  Receipt Date: 20220211
  Transmission Date: 20220424
  Serious: Yes (Death)
  Sender: FDA-Public Use
  Company Number: CA-PFIZER INC-202200222901

PATIENT
  Age: 54 Year

DRUGS (1)
  1. BEVACIZUMAB [Suspect]
     Active Substance: BEVACIZUMAB
     Route: 065

REACTIONS (1)
  - Death [Fatal]
